FAERS Safety Report 10164905 (Version 1)
Quarter: 2014Q2

REPORT INFORMATION
  Report Type: Spontaneous
  Country: US (occurrence: US)
  Receive Date: 20140510
  Receipt Date: 20140510
  Transmission Date: 20141212
  Serious: No
  Sender: FDA-Public Use
  Company Number: US-BRISTOL-MYERS SQUIBB COMPANY-20199576

PATIENT
  Sex: Female

DRUGS (3)
  1. BYDUREON [Suspect]
  2. VICTOZA [Concomitant]
  3. METFORMIN [Concomitant]

REACTIONS (6)
  - Peripheral swelling [Unknown]
  - Weight increased [Unknown]
  - Blood glucose increased [Unknown]
  - Urticaria [Unknown]
  - Blood pressure increased [Unknown]
  - Injection site haemorrhage [Unknown]
